FAERS Safety Report 17563124 (Version 2)
Quarter: 2020Q2

REPORT INFORMATION
  Report Type: Spontaneous
  Country: NO (occurrence: NO)
  Receive Date: 20200319
  Receipt Date: 20200626
  Transmission Date: 20200713
  Serious: Yes (Death, Hospitalization, Other)
  Sender: FDA-Public Use
  Company Number: NO-009507513-2003NOR003720

PATIENT
  Sex: Female

DRUGS (15)
  1. TEMODAL [Suspect]
     Active Substance: TEMOZOLOMIDE
     Indication: ANAPLASTIC OLIGODENDROGLIOMA
     Dosage: 150 MG/ M2
     Dates: start: 20190730
  2. TEMODAL [Suspect]
     Active Substance: TEMOZOLOMIDE
     Dosage: TO 200MG/M2, 400 MG X 1 FOR 5 CONSEQUTIVE DAYS
     Dates: start: 201909
  3. NEURONTIN [Concomitant]
     Active Substance: GABAPENTIN
     Dosage: 300 MILLIGRAM X3
  4. TEMODAL [Suspect]
     Active Substance: TEMOZOLOMIDE
     Dosage: UNK
     Dates: start: 20191217
  5. PENICILLIN (UNSPECIFIED) [Concomitant]
     Active Substance: PENICILLIN
  6. TEMODAL [Suspect]
     Active Substance: TEMOZOLOMIDE
     Dosage: UNK
     Dates: start: 20191001
  7. REMERON [Suspect]
     Active Substance: MIRTAZAPINE
     Dosage: UNK
  8. DEXAMETHASONE. [Concomitant]
     Active Substance: DEXAMETHASONE
  9. TEMODAL [Suspect]
     Active Substance: TEMOZOLOMIDE
     Dosage: 150 MG/M2
     Dates: start: 20190828
  10. FLAGYL (METRONIDAZOLE BENZOATE) [Concomitant]
     Active Substance: METRONIDAZOLE BENZOATE
  11. TEMODAL [Suspect]
     Active Substance: TEMOZOLOMIDE
     Dosage: 4 TEMOZOLOMIDE CURES 400MG DAILY 1-5 START UP 29.OCTOBER 2020
     Dates: start: 20191129
  12. GENTAMICIN SULFATE. [Concomitant]
     Active Substance: GENTAMICIN SULFATE
     Dosage: UNK
  13. NEURONTIN [Concomitant]
     Active Substance: GABAPENTIN
     Dosage: 300+300+600 MG
  14. NEURONTIN [Concomitant]
     Active Substance: GABAPENTIN
     Dosage: 300+600+600 MG
  15. CIPROXIN (CIPROFLOXACIN) [Concomitant]
     Active Substance: CIPROFLOXACIN

REACTIONS (20)
  - Death [Fatal]
  - Peripheral T-cell lymphoma unspecified [Unknown]
  - Oral fungal infection [Unknown]
  - Bacteriuria [Unknown]
  - Splenomegaly [Unknown]
  - Nausea [Unknown]
  - Bronchitis [Unknown]
  - Biopsy bone marrow [Unknown]
  - Leukaemia [Unknown]
  - Neoplasm malignant [Unknown]
  - Thrombocytopenia [Unknown]
  - Rash [Unknown]
  - Bronchiolitis [Unknown]
  - Liver function test abnormal [Unknown]
  - Pancytopenia [Not Recovered/Not Resolved]
  - Post herpetic neuralgia [Unknown]
  - Herpes zoster [Unknown]
  - Metastases to muscle [Unknown]
  - Ill-defined disorder [Unknown]
  - Disease progression [Unknown]

NARRATIVE: CASE EVENT DATE: 20191125
